FAERS Safety Report 25304021 (Version 1)
Quarter: 2025Q2

REPORT INFORMATION
  Report Type: Spontaneous
  Country: FR (occurrence: FR)
  Receive Date: 20250513
  Receipt Date: 20250513
  Transmission Date: 20250716
  Serious: Yes (Hospitalization)
  Sender: RANBAXY
  Company Number: FR-SUN PHARMACEUTICAL INDUSTRIES LTD-2025RR-506590

PATIENT
  Age: 35 Year
  Sex: Female
  Weight: 60 kg

DRUGS (5)
  1. ACETAMINOPHEN [Suspect]
     Active Substance: ACETAMINOPHEN
     Indication: Poisoning deliberate
     Route: 048
     Dates: start: 20250130
  2. ZOPICLONE [Suspect]
     Active Substance: ZOPICLONE
     Indication: Poisoning deliberate
     Route: 048
     Dates: start: 20250130
  3. DIAZEPAM [Suspect]
     Active Substance: DIAZEPAM
     Indication: Poisoning deliberate
     Route: 048
     Dates: start: 20250130
  4. LOXAPINE [Suspect]
     Active Substance: LOXAPINE
     Indication: Poisoning deliberate
     Route: 048
     Dates: start: 20250130
  5. PROPRANOLOL [Suspect]
     Active Substance: PROPRANOLOL HYDROCHLORIDE
     Indication: Poisoning deliberate
     Route: 048
     Dates: start: 20250130

REACTIONS (4)
  - Poisoning deliberate [Unknown]
  - Coma [Recovered/Resolved]
  - Hypotension [Recovered/Resolved]
  - Sinus bradycardia [Recovered/Resolved]

NARRATIVE: CASE EVENT DATE: 20250130
